FAERS Safety Report 4867242-2 (Version None)
Quarter: 2005Q4

REPORT INFORMATION
  Report Type: 
  Country: None (occurrence: None)
  Receive Date: 20051228
  Receipt Date: 20051216
  Transmission Date: 20060501
  Serious: Yes (Death)
  Sender: FDA-Public Use
  Company Number: US-JNJFOC-20051204559

PATIENT
  Age: 73 Year
  Sex: Male
  Weight: 82 kg

DRUGS (11)
  1. REOPRO [Suspect]
     Indication: THROMBOSIS
     Dosage: INFUSED 0.6MG Q HR FOR 24 HOURS
     Route: 042
  2. REOPRO [Suspect]
     Route: 042
  3. HEPARIN [Suspect]
     Route: 042
  4. PLAVIX [Suspect]
     Route: 048
  5. PLAVIX [Suspect]
     Route: 048
  6. RAMIPRIL [Concomitant]
  7. RAMIPRIL [Concomitant]
  8. LIPITOR [Concomitant]
     Indication: CORONARY ARTERY DISEASE
     Route: 048
  9. ASPIRIN [Concomitant]
     Indication: CORONARY ARTERY DISEASE
     Dosage: 81-325 MG
     Route: 048
  10. METOPROLOL [Concomitant]
     Indication: CORONARY ARTERY DISEASE
     Dosage: 50-100 MG
     Route: 048
  11. COLACE [Concomitant]
     Route: 048

REACTIONS (1)
  - MYOCARDIAL RUPTURE [None]
